FAERS Safety Report 4373299-8 (Version None)
Quarter: 2004Q2

REPORT INFORMATION
  Report Type: 
  Country: None (occurrence: None)
  Receive Date: 20040603
  Receipt Date: 20040524
  Transmission Date: 20050107
  Serious: Yes (Hospitalization)
  Sender: FDA-Public Use
  Company Number: 2004035306

PATIENT
  Age: 86 Year
  Sex: Female
  Weight: 72.2 kg

DRUGS (7)
  1. ACCUPRIL [Suspect]
     Indication: HYPERTENSION
     Dosage: 40 MG (20 MG, 2 IN 1 D), ORAL
     Route: 048
  2. FUROSEMIDE [Suspect]
     Indication: CARDIAC FAILURE CONGESTIVE
     Dosage: 80 MG (40 MG, 2 IN 1 D), ORAL
     Route: 048
  3. BIVALIRUDIN (BIVALIRUDIN) [Concomitant]
  4. HYOSCYAMINE (HYOSCYAMINE) [Concomitant]
  5. LABETALOL HCL [Concomitant]
  6. AMLODIPINE BESYLATE [Concomitant]
  7. POTASSIUM CHLORIDE [Concomitant]

REACTIONS (8)
  - ASTHENIA [None]
  - BACTERIA URINE [None]
  - DEHYDRATION [None]
  - DIZZINESS [None]
  - DYSPNOEA EXERTIONAL [None]
  - FATIGUE [None]
  - URINE LEUKOCYTE ESTERASE POSITIVE [None]
  - WHITE BLOOD CELLS URINE POSITIVE [None]
